FAERS Safety Report 18191422 (Version 6)
Quarter: 2024Q2

REPORT INFORMATION
  Report Type: Spontaneous
  Country: CA (occurrence: CA)
  Receive Date: 20200824
  Receipt Date: 20240412
  Transmission Date: 20240715
  Serious: Yes (Hospitalization, Other)
  Sender: FDA-Public Use
  Company Number: CA-CELLTRION INC.-2020CA025357

PATIENT

DRUGS (275)
  1. TRASTUZUMAB [Suspect]
     Active Substance: TRASTUZUMAB
     Indication: Tardive dyskinesia
     Dosage: 626.0 MG
     Route: 065
  2. TRASTUZUMAB [Suspect]
     Active Substance: TRASTUZUMAB
     Dosage: 866.0 MG
     Route: 065
  3. TRASTUZUMAB [Suspect]
     Active Substance: TRASTUZUMAB
     Dosage: UNK
     Route: 065
  4. TRASTUZUMAB [Suspect]
     Active Substance: TRASTUZUMAB
     Dosage: UNK
     Route: 065
  5. TRASTUZUMAB [Suspect]
     Active Substance: TRASTUZUMAB
     Dosage: UNK
     Route: 048
  6. TRASTUZUMAB [Suspect]
     Active Substance: TRASTUZUMAB
     Dosage: 626.0 MILLIGRAM
     Route: 065
  7. TRASTUZUMAB [Suspect]
     Active Substance: TRASTUZUMAB
     Dosage: 626.0 MILLIGRAM
     Route: 065
  8. TRASTUZUMAB [Suspect]
     Active Substance: TRASTUZUMAB
     Dosage: 626.0 MILLIGRAM
     Route: 065
  9. TRASTUZUMAB [Suspect]
     Active Substance: TRASTUZUMAB
     Dosage: 626.0 MILLIGRAM 1 EVERY 1 DAYS
     Route: 065
  10. TRASTUZUMAB [Suspect]
     Active Substance: TRASTUZUMAB
     Dosage: 866.0 MILLIGRAM 1 EVERY 1 DAYS
     Route: 065
  11. TRASTUZUMAB [Suspect]
     Active Substance: TRASTUZUMAB
     Dosage: 866.0 MILLIGRAM 1 EVERY 1 DAYS
     Route: 065
  12. TRASTUZUMAB [Suspect]
     Active Substance: TRASTUZUMAB
     Dosage: 625 MG
     Route: 065
  13. TRASTUZUMAB [Suspect]
     Active Substance: TRASTUZUMAB
     Dosage: UNK
     Route: 065
  14. TRASTUZUMAB [Suspect]
     Active Substance: TRASTUZUMAB
     Dosage: UNK
     Route: 065
  15. TRASTUZUMAB [Suspect]
     Active Substance: TRASTUZUMAB
     Dosage: UNK
  16. TRASTUZUMAB [Suspect]
     Active Substance: TRASTUZUMAB
     Dosage: 626 MILLIGRAM, 1 EVERY 1 DAY
     Route: 065
  17. TRASTUZUMAB [Suspect]
     Active Substance: TRASTUZUMAB
     Dosage: 626 MILLIGRAM, 1 EVERY 1 DAY
     Route: 065
  18. TRASTUZUMAB [Suspect]
     Active Substance: TRASTUZUMAB
     Dosage: UNK
     Route: 050
  19. APREPITANT [Suspect]
     Active Substance: APREPITANT
     Indication: Supportive care
     Dosage: 80.0 MG, 1 EVERY 1 DAY
     Route: 048
  20. APREPITANT [Suspect]
     Active Substance: APREPITANT
     Dosage: 125.0 MG, 1 EVERY 1 DAY
     Route: 048
  21. APREPITANT [Suspect]
     Active Substance: APREPITANT
     Dosage: UNK
     Route: 048
  22. APREPITANT [Suspect]
     Active Substance: APREPITANT
     Dosage: UNK
     Route: 048
  23. APREPITANT [Suspect]
     Active Substance: APREPITANT
     Dosage: UNK
     Route: 048
  24. APREPITANT [Suspect]
     Active Substance: APREPITANT
     Dosage: UNK
     Route: 048
  25. APREPITANT [Suspect]
     Active Substance: APREPITANT
     Dosage: UNK
     Route: 048
  26. APREPITANT [Suspect]
     Active Substance: APREPITANT
     Dosage: UNK
     Route: 048
  27. APREPITANT [Suspect]
     Active Substance: APREPITANT
     Dosage: UNK
     Route: 048
  28. APREPITANT [Suspect]
     Active Substance: APREPITANT
     Dosage: UNK
     Route: 048
  29. APREPITANT [Suspect]
     Active Substance: APREPITANT
     Dosage: UNK
     Route: 048
  30. APREPITANT [Suspect]
     Active Substance: APREPITANT
     Dosage: UNK
     Route: 048
  31. APREPITANT [Suspect]
     Active Substance: APREPITANT
     Dosage: 1 EVERY 1 DAY
     Route: 048
  32. APREPITANT [Suspect]
     Active Substance: APREPITANT
     Indication: Supportive care
     Dosage: 125.0 MG, 1 EVERY 1 DAY
     Route: 048
  33. APREPITANT [Suspect]
     Active Substance: APREPITANT
     Dosage: 80.0 MG, 1 EVERY 1 DAY
     Route: 048
  34. APREPITANT [Suspect]
     Active Substance: APREPITANT
     Dosage: 80 MILLIGRAM 1 EVERY 1 DAY
     Route: 048
  35. APREPITANT [Suspect]
     Active Substance: APREPITANT
     Dosage: 125 MILLIGRAM
     Route: 048
  36. APREPITANT [Suspect]
     Active Substance: APREPITANT
     Dosage: 125 MILLIGRAM
     Route: 048
  37. APREPITANT [Suspect]
     Active Substance: APREPITANT
     Dosage: 80.0 MG, 1 EVERY 1 DAY
     Route: 048
  38. BETAMETHASONE [Suspect]
     Active Substance: BETAMETHASONE\BETAMETHASONE DIPROPIONATE
     Indication: Tardive dyskinesia
     Dosage: UNK, 2 EVERY 1 DAY
     Route: 065
  39. BETAMETHASONE [Suspect]
     Active Substance: BETAMETHASONE\BETAMETHASONE DIPROPIONATE
     Dosage: UNK
     Route: 048
  40. BETAMETHASONE [Suspect]
     Active Substance: BETAMETHASONE\BETAMETHASONE DIPROPIONATE
     Dosage: UNK
     Route: 048
  41. BETAMETHASONE [Suspect]
     Active Substance: BETAMETHASONE\BETAMETHASONE DIPROPIONATE
     Dosage: UNK, EVERY 12 HOURS
     Route: 048
  42. BETAMETHASONE [Suspect]
     Active Substance: BETAMETHASONE\BETAMETHASONE DIPROPIONATE
     Dosage: UNK, 2 EVERY 1 DAY
     Route: 065
  43. DEXAMETHASONE [Suspect]
     Active Substance: DEXAMETHASONE
     Indication: Supportive care
     Dosage: 20.0 MG, 1 EVERY 1 DAY
     Route: 048
  44. DEXAMETHASONE [Suspect]
     Active Substance: DEXAMETHASONE
     Dosage: UNK
     Route: 048
  45. DEXAMETHASONE [Suspect]
     Active Substance: DEXAMETHASONE
     Dosage: UNK
     Route: 048
  46. DEXAMETHASONE [Suspect]
     Active Substance: DEXAMETHASONE
     Dosage: UNK
     Route: 048
  47. DEXAMETHASONE [Suspect]
     Active Substance: DEXAMETHASONE
     Dosage: 20.0 MILLIGRAM 1 EVERY 1 DAY
     Route: 048
  48. DEXAMETHASONE [Suspect]
     Active Substance: DEXAMETHASONE
     Dosage: 20.0 MILLIGRAM 1 EVERY 1 DAY
     Route: 048
  49. DEXAMETHASONE [Suspect]
     Active Substance: DEXAMETHASONE
     Dosage: 20.0 MILLIGRAM 1 EVERY 1 DAY
     Route: 048
  50. DEXAMETHASONE [Suspect]
     Active Substance: DEXAMETHASONE
     Dosage: 20.0 MILLIGRAM 1 EVERY 1 DAY
     Route: 048
  51. DEXAMETHASONE [Suspect]
     Active Substance: DEXAMETHASONE
     Dosage: 20.0 MG, 1 EVERY 1 DAY
     Route: 048
  52. DEXAMETHASONE [Suspect]
     Active Substance: DEXAMETHASONE
     Indication: Supportive care
     Dosage: UNK
     Route: 048
  53. DEXAMETHASONE [Suspect]
     Active Substance: DEXAMETHASONE
     Dosage: 20.0 MG, 1 EVERY 1 DAY
     Route: 048
  54. DEXAMETHASONE [Suspect]
     Active Substance: DEXAMETHASONE
     Dosage: UNK
     Route: 048
  55. DEXAMETHASONE [Suspect]
     Active Substance: DEXAMETHASONE
     Dosage: UNK
     Route: 048
  56. DEXAMETHASONE [Suspect]
     Active Substance: DEXAMETHASONE
     Dosage: UNK
     Route: 048
  57. DEXAMETHASONE [Suspect]
     Active Substance: DEXAMETHASONE
     Dosage: 20.0 MILLIGRAM 1 EVERY 1 DAY
     Route: 048
  58. DEXAMETHASONE [Suspect]
     Active Substance: DEXAMETHASONE
     Dosage: 20.0 MILLIGRAM 1 EVERY 1 DAY
     Route: 048
  59. DEXAMETHASONE [Suspect]
     Active Substance: DEXAMETHASONE
     Dosage: 20.0 MILLIGRAM 1 EVERY 1 DAY
     Route: 048
  60. DEXAMETHASONE [Suspect]
     Active Substance: DEXAMETHASONE
     Dosage: 20.0 MILLIGRAM 1 EVERY 1 DAY
     Route: 048
  61. DEXAMETHASONE [Suspect]
     Active Substance: DEXAMETHASONE
     Dosage: 20.0 MILLIGRAM 1 EVERY 1 DAY
     Route: 048
  62. DOXORUBICIN HYDROCHLORIDE [Suspect]
     Active Substance: DOXORUBICIN HYDROCHLORIDE
     Indication: Breast cancer
     Dosage: 136.0 MG, CYCLICAL
     Route: 042
  63. DOXORUBICIN [Suspect]
     Active Substance: DOXORUBICIN
     Indication: Breast cancer female
     Dosage: 136.0 MG, 1 EVERY 2 WEEKS / 1 EVERY 14 DAYS
     Route: 042
  64. DOXORUBICIN [Suspect]
     Active Substance: DOXORUBICIN
     Indication: Breast cancer
     Dosage: 136.0 MG
     Route: 042
  65. DOXORUBICIN [Suspect]
     Active Substance: DOXORUBICIN
     Dosage: 136.0 MG, 1 EVERY 4 HOURS
     Route: 042
  66. DOXORUBICIN [Suspect]
     Active Substance: DOXORUBICIN
     Dosage: 136.0 MILLIGRAM 1 EVERY 2 WEEKS
     Route: 042
  67. DOXORUBICIN [Suspect]
     Active Substance: DOXORUBICIN
     Indication: Breast cancer female
     Dosage: 136 MILLIGRAM
     Route: 042
  68. DOXORUBICIN [Suspect]
     Active Substance: DOXORUBICIN
     Indication: Breast cancer
     Dosage: 136 MILLIGRAM 1 EVERY 2 WEEKS
     Route: 042
  69. DOXORUBICIN [Suspect]
     Active Substance: DOXORUBICIN
     Dosage: 136 MILLIGRAM 1 EVERY 2 WEEKS
     Route: 042
  70. DOXORUBICIN [Suspect]
     Active Substance: DOXORUBICIN
     Dosage: UNK
     Route: 042
  71. DOXORUBICIN [Suspect]
     Active Substance: DOXORUBICIN
     Dosage: 136 MILLIGRAM 1 EVERY 2 WEEKS
     Route: 042
  72. ENOXAPARIN [Suspect]
     Active Substance: ENOXAPARIN
     Indication: Tardive dyskinesia
     Dosage: 150.0 MG, 1 EVERY 1 DAY
     Route: 058
  73. ENOXAPARIN [Suspect]
     Active Substance: ENOXAPARIN
     Dosage: UNK, 1 EVERY 1 DAY
     Route: 058
  74. ENOXAPARIN [Suspect]
     Active Substance: ENOXAPARIN
     Dosage: 150.0 MILLIGRAM 1 EVERY 1 DAY
     Route: 058
  75. ENOXAPARIN [Suspect]
     Active Substance: ENOXAPARIN
     Dosage: UNK
     Route: 058
  76. ENOXAPARIN [Suspect]
     Active Substance: ENOXAPARIN
     Dosage: 150.0 MILLIGRAM 1 EVERY 1 DAY
     Route: 058
  77. FILGRASTIM [Suspect]
     Active Substance: FILGRASTIM
     Indication: Supportive care
     Dosage: 480.0 MICROGRAM, 1 EVERY 1 DAY
     Route: 065
  78. FILGRASTIM [Suspect]
     Active Substance: FILGRASTIM
     Dosage: 480.0 MG, 1 EVERY 1 DAY
     Route: 065
  79. FILGRASTIM [Suspect]
     Active Substance: FILGRASTIM
     Dosage: UNK, 1 EVERY 1 DAY
     Route: 065
  80. FILGRASTIM [Suspect]
     Active Substance: FILGRASTIM
     Dosage: UNK, 1 EVERY 1 DAY
     Route: 065
  81. FILGRASTIM [Suspect]
     Active Substance: FILGRASTIM
     Dosage: UNK, 1 EVERY 1 DAY
     Route: 065
  82. FILGRASTIM [Suspect]
     Active Substance: FILGRASTIM
     Dosage: UNK
     Route: 048
  83. LEVOFLOXACIN [Suspect]
     Active Substance: LEVOFLOXACIN
     Indication: Tardive dyskinesia
     Dosage: 500.0 MG, 1 EVERY 1 DAY
     Route: 048
  84. LEVOFLOXACIN [Suspect]
     Active Substance: LEVOFLOXACIN
     Dosage: 500.0 MILLIGRAM
     Route: 048
  85. LEVOFLOXACIN [Suspect]
     Active Substance: LEVOFLOXACIN
     Dosage: 500.0 MILLIGRAM 1 EVERY 1 DAY
     Route: 048
  86. LEVOFLOXACIN [Suspect]
     Active Substance: LEVOFLOXACIN
     Dosage: UNK
     Route: 048
  87. LEVOFLOXACIN [Suspect]
     Active Substance: LEVOFLOXACIN
     Dosage: 500 MILLILITER
     Route: 048
  88. LEVOFLOXACIN [Suspect]
     Active Substance: LEVOFLOXACIN
     Indication: Tardive dyskinesia
     Dosage: 500.0 MG, 1 EVERY 1 DAY
     Route: 048
  89. LEVOFLOXACIN [Suspect]
     Active Substance: LEVOFLOXACIN
     Dosage: UNK, 1 EVERY 1 DAY
     Route: 048
  90. LEVOFLOXACIN [Suspect]
     Active Substance: LEVOFLOXACIN
     Dosage: 500.0 MILLIGRAM 1 EVERY 1 DAY
     Route: 048
  91. LEVOFLOXACIN [Suspect]
     Active Substance: LEVOFLOXACIN
     Dosage: 500.0 MILLIGRAM 1 EVERY 1 DAY
     Route: 048
  92. LEVOFLOXACIN [Suspect]
     Active Substance: LEVOFLOXACIN
     Dosage: 500 MILLIGRAM
     Route: 048
  93. LORAZEPAM [Suspect]
     Active Substance: LORAZEPAM
     Indication: Tardive dyskinesia
     Dosage: 0.5 MG, 2 EVERY 1 DAY
     Route: 048
  94. LORAZEPAM [Suspect]
     Active Substance: LORAZEPAM
     Dosage: UNK
     Route: 048
  95. LORAZEPAM [Suspect]
     Active Substance: LORAZEPAM
     Dosage: UNK
     Route: 048
  96. LORAZEPAM [Suspect]
     Active Substance: LORAZEPAM
     Dosage: UNK
     Route: 048
  97. LORAZEPAM [Suspect]
     Active Substance: LORAZEPAM
     Dosage: UNK
     Route: 048
  98. LORAZEPAM [Suspect]
     Active Substance: LORAZEPAM
     Indication: Tardive dyskinesia
     Dosage: 0.5 MG, 2 EVERY 1 DAY
     Route: 048
  99. LORAZEPAM [Suspect]
     Active Substance: LORAZEPAM
     Dosage: UNK, 2 EVERY 1 DAY
     Route: 048
  100. METOCLOPRAMIDE [Suspect]
     Active Substance: METOCLOPRAMIDE
     Indication: Tardive dyskinesia
     Dosage: 10.0 MG, 4 EVERY 1 DAY
     Route: 048
  101. METOCLOPRAMIDE [Suspect]
     Active Substance: METOCLOPRAMIDE
     Dosage: UNK, 4 EVERY 1 DAY
     Route: 048
  102. METOCLOPRAMIDE [Suspect]
     Active Substance: METOCLOPRAMIDE
     Dosage: 10.0 MILLIGRAM 4 EVERY 1 DAY
     Route: 048
  103. METOCLOPRAMIDE [Suspect]
     Active Substance: METOCLOPRAMIDE
     Dosage: 10.0 MILLIGRAM 1 EVERY 6 HOURS
     Route: 048
  104. METOCLOPRAMIDE [Suspect]
     Active Substance: METOCLOPRAMIDE
     Dosage: 10.0 MILLIGRAM 1 EVERY 1 DAY
     Route: 048
  105. ONDANSETRON [Suspect]
     Active Substance: ONDANSETRON
     Indication: Supportive care
     Dosage: 8.0 MG
     Route: 048
  106. ONDANSETRON [Suspect]
     Active Substance: ONDANSETRON
     Dosage: UNK
     Route: 048
  107. ONDANSETRON [Suspect]
     Active Substance: ONDANSETRON
     Dosage: UNK
     Route: 048
  108. ONDANSETRON [Suspect]
     Active Substance: ONDANSETRON
     Dosage: UNK
     Route: 048
  109. ONDANSETRON [Suspect]
     Active Substance: ONDANSETRON
     Dosage: UNK
     Route: 048
  110. ONDANSETRON [Suspect]
     Active Substance: ONDANSETRON
     Dosage: UNK
     Route: 048
  111. ONDANSETRON [Suspect]
     Active Substance: ONDANSETRON
     Dosage: UNK
     Route: 048
  112. ONDANSETRON [Suspect]
     Active Substance: ONDANSETRON
     Dosage: UNK
     Route: 048
  113. ONDANSETRON [Suspect]
     Active Substance: ONDANSETRON
     Dosage: UNK
     Route: 065
  114. ONDANSETRON [Suspect]
     Active Substance: ONDANSETRON
     Dosage: 8.0 MILLIGRAM 1 EVERY 1 DAY
     Route: 048
  115. ONDANSETRON [Suspect]
     Active Substance: ONDANSETRON
     Dosage: 8.0 MILLIGRAM 1 EVERY 1 DAY
     Route: 048
  116. ONDANSETRON [Suspect]
     Active Substance: ONDANSETRON
     Indication: Supportive care
     Dosage: UNK
     Route: 048
  117. ONDANSETRON [Suspect]
     Active Substance: ONDANSETRON
     Dosage: UNK
     Route: 048
  118. ONDANSETRON [Suspect]
     Active Substance: ONDANSETRON
     Dosage: UNK
     Route: 048
  119. ONDANSETRON [Suspect]
     Active Substance: ONDANSETRON
     Dosage: UNK
     Route: 048
  120. ONDANSETRON [Suspect]
     Active Substance: ONDANSETRON
     Dosage: UNK
     Route: 048
  121. ONDANSETRON [Suspect]
     Active Substance: ONDANSETRON
     Dosage: UNK
     Route: 048
  122. ONDANSETRON [Suspect]
     Active Substance: ONDANSETRON
     Dosage: UNK
     Route: 048
  123. ONDANSETRON [Suspect]
     Active Substance: ONDANSETRON
     Dosage: UNK
     Route: 048
  124. ONDANSETRON [Suspect]
     Active Substance: ONDANSETRON
     Dosage: 8 MILLIGRAM 1 EVERY 1 DAY
     Route: 048
  125. ONDANSETRON [Suspect]
     Active Substance: ONDANSETRON
     Dosage: 8 MILLIGRAM
     Route: 048
  126. ONDANSETRON HYDROCHLORIDE [Suspect]
     Active Substance: ONDANSETRON HYDROCHLORIDE
     Indication: Supportive care
     Dosage: 8.0 MG
     Route: 048
  127. PACLITAXEL [Suspect]
     Active Substance: PACLITAXEL
     Indication: Breast cancer
     Dosage: 303.0 MG
     Route: 042
  128. PACLITAXEL [Suspect]
     Active Substance: PACLITAXEL
     Indication: Breast cancer
     Dosage: 303.0 MILLIGRAM
     Route: 042
  129. PACLITAXEL [Suspect]
     Active Substance: PACLITAXEL
     Indication: Supportive care
     Dosage: 303.0 MILLIGRAM
     Route: 042
  130. PACLITAXEL [Suspect]
     Active Substance: PACLITAXEL
     Dosage: 393.0 MILLIGRAM
     Route: 042
  131. PACLITAXEL [Suspect]
     Active Substance: PACLITAXEL
     Dosage: 393.0 MILLIGRAM 1 EVERY 1 DAY
     Route: 042
  132. PACLITAXEL [Suspect]
     Active Substance: PACLITAXEL
     Dosage: 303.0 MILLIGRAM
     Route: 042
  133. PACLITAXEL [Suspect]
     Active Substance: PACLITAXEL
     Dosage: 243.0 MILLIGRAM 1 EVERY 1 DAY
     Route: 042
  134. PACLITAXEL [Suspect]
     Active Substance: PACLITAXEL
     Dosage: 243.0 MILLIGRAM
     Route: 042
  135. PACLITAXEL [Suspect]
     Active Substance: PACLITAXEL
     Dosage: 393.0 MILLIGRAM
     Route: 042
  136. PACLITAXEL [Suspect]
     Active Substance: PACLITAXEL
     Indication: Breast cancer
     Dosage: 243.0 MG
     Route: 042
  137. PACLITAXEL [Suspect]
     Active Substance: PACLITAXEL
     Indication: Supportive care
     Dosage: 393.0 MG
     Route: 042
  138. PACLITAXEL [Suspect]
     Active Substance: PACLITAXEL
     Indication: Breast cancer female
     Dosage: UNK
     Route: 042
  139. PACLITAXEL [Suspect]
     Active Substance: PACLITAXEL
     Dosage: UNK
     Route: 042
  140. PACLITAXEL [Suspect]
     Active Substance: PACLITAXEL
     Dosage: UNK
     Route: 042
  141. PACLITAXEL [Suspect]
     Active Substance: PACLITAXEL
     Dosage: UNK
     Route: 042
  142. PACLITAXEL [Suspect]
     Active Substance: PACLITAXEL
     Dosage: UNK
     Route: 042
  143. PACLITAXEL [Suspect]
     Active Substance: PACLITAXEL
     Dosage: UNK
     Route: 042
  144. PACLITAXEL [Suspect]
     Active Substance: PACLITAXEL
     Dosage: UNK
     Route: 042
  145. PACLITAXEL [Suspect]
     Active Substance: PACLITAXEL
     Indication: Breast cancer
     Dosage: UNK
     Route: 042
  146. PACLITAXEL [Suspect]
     Active Substance: PACLITAXEL
     Indication: Supportive care
     Dosage: UNK
     Route: 042
  147. PACLITAXEL [Suspect]
     Active Substance: PACLITAXEL
     Indication: Breast cancer female
     Dosage: UNK
     Route: 042
  148. PACLITAXEL [Suspect]
     Active Substance: PACLITAXEL
     Dosage: 243 MILLIGRAM
     Route: 042
  149. PACLITAXEL [Suspect]
     Active Substance: PACLITAXEL
     Dosage: 303 MILLIGRAM
     Route: 042
  150. PACLITAXEL [Suspect]
     Active Substance: PACLITAXEL
     Indication: Breast cancer
     Dosage: 243 MILLIGRAM 1 EVERY 1 DAY
     Route: 042
  151. PACLITAXEL [Suspect]
     Active Substance: PACLITAXEL
     Indication: Supportive care
     Dosage: 393 MILLIGRAM 1 EVERY 1 DAY
     Route: 042
  152. PACLITAXEL [Suspect]
     Active Substance: PACLITAXEL
     Dosage: 393 MILLIGRAM 1 EVERY 1 DAY
     Route: 042
  153. PEGFILGRASTIM [Suspect]
     Active Substance: PEGFILGRASTIM
     Indication: Supportive care
     Dosage: 6.0 MG
     Route: 058
  154. PEGFILGRASTIM [Suspect]
     Active Substance: PEGFILGRASTIM
     Dosage: 6.0 MG
     Route: 058
  155. PEGFILGRASTIM [Suspect]
     Active Substance: PEGFILGRASTIM
     Dosage: 6.0 MG
     Route: 058
  156. PEGFILGRASTIM [Suspect]
     Active Substance: PEGFILGRASTIM
     Dosage: 6.0 MG
     Route: 058
  157. PEGFILGRASTIM [Suspect]
     Active Substance: PEGFILGRASTIM
     Dosage: 6.0 MG
     Route: 058
  158. CYCLOPHOSPHAMIDE [Suspect]
     Active Substance: CYCLOPHOSPHAMIDE
     Indication: Breast cancer
     Dosage: 1360.0 MG, CYCLICAL
     Route: 042
  159. CYCLOPHOSPHAMIDE [Suspect]
     Active Substance: CYCLOPHOSPHAMIDE
     Indication: Breast cancer
     Dosage: 1360.0 MG, 1 EVERY 14 DAYS
     Route: 042
  160. CYCLOPHOSPHAMIDE [Suspect]
     Active Substance: CYCLOPHOSPHAMIDE
     Indication: Tardive dyskinesia
     Dosage: UNK
     Route: 042
  161. CYCLOPHOSPHAMIDE [Suspect]
     Active Substance: CYCLOPHOSPHAMIDE
     Dosage: UNK, 1 EVERY 2 WEEKS
     Route: 042
  162. CYCLOPHOSPHAMIDE [Suspect]
     Active Substance: CYCLOPHOSPHAMIDE
     Dosage: 1360 MILLIGRAM 1 EVERY 2 WEEKS
     Route: 042
  163. CYCLOPHOSPHAMIDE [Suspect]
     Active Substance: CYCLOPHOSPHAMIDE
     Dosage: 1360 MILLIGRAM 1 EVERY 2 WEEKS
     Route: 042
  164. RANITIDINE [Suspect]
     Active Substance: RANITIDINE
     Indication: Tardive dyskinesia
     Dosage: 150.0 MG, 2 EVERY 1 DAY
     Route: 048
  165. RANITIDINE [Suspect]
     Active Substance: RANITIDINE
     Dosage: UNK, 2 EVERY 1 DAY
     Route: 048
  166. TYLENOL WITH CODEINE [Suspect]
     Active Substance: ACETAMINOPHEN\CODEINE PHOSPHATE
     Indication: Tardive dyskinesia
     Dosage: 30.0 MG, 6 EVERY 1 DAY
     Route: 065
  167. TYLENOL WITH CODEINE [Suspect]
     Active Substance: ACETAMINOPHEN\CODEINE PHOSPHATE
     Dosage: 1 EVERY 4 HOURS
     Route: 065
  168. TYLENOL WITH CODEINE [Suspect]
     Active Substance: ACETAMINOPHEN\CODEINE PHOSPHATE
     Dosage: 30 MG, 1 EVERY 4 HOURS
     Route: 065
  169. TYLENOL WITH CODEINE [Suspect]
     Active Substance: ACETAMINOPHEN\CODEINE PHOSPHATE
     Indication: Tardive dyskinesia
     Dosage: 30.0 MG, 1 EVERY 4 HOURS
     Route: 065
  170. TYLENOL WITH CODEINE [Suspect]
     Active Substance: ACETAMINOPHEN\CODEINE PHOSPHATE
     Dosage: UNK, 1 EVERY 4 HOURS
     Route: 065
  171. ACETAMINOPHEN\CODEINE PHOSPHATE [Suspect]
     Active Substance: ACETAMINOPHEN\CODEINE PHOSPHATE
     Indication: Tardive dyskinesia
     Dosage: 30 MG, 6 EVERY 1 DAYS
     Route: 065
  172. ACETAMINOPHEN\CODEINE PHOSPHATE [Suspect]
     Active Substance: ACETAMINOPHEN\CODEINE PHOSPHATE
     Dosage: 30 MG, 1 EVERY 1 DAYS
     Route: 065
  173. ACETAMINOPHEN\CODEINE PHOSPHATE [Suspect]
     Active Substance: ACETAMINOPHEN\CODEINE PHOSPHATE
     Indication: Tardive dyskinesia
     Dosage: 30 MILLIGRAM 1 EVERY 1 DAYS
     Route: 065
  174. ACETAMINOPHEN\CODEINE PHOSPHATE [Suspect]
     Active Substance: ACETAMINOPHEN\CODEINE PHOSPHATE
     Dosage: 30 MILLIGRAM 1 EVERY 4 HOURS
     Route: 065
  175. ACETAMINOPHEN\CODEINE PHOSPHATE [Suspect]
     Active Substance: ACETAMINOPHEN\CODEINE PHOSPHATE
     Dosage: 30 MILLIGRAM 1 EVERY 4 HOURS
     Route: 065
  176. ACETAMINOPHEN\CODEINE PHOSPHATE [Suspect]
     Active Substance: ACETAMINOPHEN\CODEINE PHOSPHATE
     Dosage: UNK
     Route: 065
  177. EMEND [Suspect]
     Active Substance: APREPITANT
     Indication: Supportive care
     Dosage: 125 MILLIGRAM 1 EVERY 1 DAY
     Route: 048
  178. EMEND [Suspect]
     Active Substance: APREPITANT
     Dosage: 125 MILLIGRAM 1 EVERY 1 DAY
     Route: 048
  179. EMEND [Suspect]
     Active Substance: APREPITANT
     Dosage: 125 MILLIGRAM 1 EVERY 1 DAY
     Route: 048
  180. EMEND [Suspect]
     Active Substance: APREPITANT
     Dosage: UNK
     Route: 048
  181. EMEND [Suspect]
     Active Substance: APREPITANT
     Dosage: UNK
     Route: 048
  182. EMEND [Suspect]
     Active Substance: APREPITANT
     Dosage: UNK
     Route: 048
  183. EMEND [Suspect]
     Active Substance: APREPITANT
     Dosage: UNK
     Route: 048
  184. EMEND [Suspect]
     Active Substance: APREPITANT
     Dosage: 80 MILLIGRAM 1 EVERY 1 DAY
     Route: 048
  185. EMEND [Suspect]
     Active Substance: APREPITANT
     Dosage: 80 MILLIGRAM 1 EVERY 1 DAY
     Route: 048
  186. EMEND [Suspect]
     Active Substance: APREPITANT
     Dosage: 80 MILLIGRAM 1 EVERY 1 DAY
     Route: 048
  187. EMEND [Suspect]
     Active Substance: APREPITANT
     Dosage: 80 MILLIGRAM 1 EVERY 1 DAY
     Route: 048
  188. EMEND [Suspect]
     Active Substance: APREPITANT
     Dosage: 80 MILLIGRAM 1 EVERY 1 DAY
     Route: 048
  189. EMEND [Suspect]
     Active Substance: APREPITANT
     Dosage: 80 MILLIGRAM 1 EVERY 1 DAY
     Route: 048
  190. EMEND [Suspect]
     Active Substance: APREPITANT
     Dosage: 80 MILLIGRAM 1 EVERY 1 DAY
     Route: 048
  191. EMEND [Suspect]
     Active Substance: APREPITANT
     Dosage: 80 MILLIGRAM 1 EVERY 1 DAY
     Route: 048
  192. EMEND [Suspect]
     Active Substance: APREPITANT
     Dosage: 80 MILLIGRAM 1 EVERY 1 DAY
     Route: 048
  193. EMEND [Suspect]
     Active Substance: APREPITANT
     Dosage: 125 MILLIGRAM
     Route: 048
  194. EMEND [Suspect]
     Active Substance: APREPITANT
     Dosage: 125 MILLIGRAM
     Route: 048
  195. EMEND [Suspect]
     Active Substance: APREPITANT
     Dosage: 125 MILLIGRAM 1 EVERY 1 DAY
     Route: 048
  196. EMEND [Suspect]
     Active Substance: APREPITANT
     Dosage: 125 MILLIGRAM 1 EVERY 1 DAY
     Route: 048
  197. EMEND [Suspect]
     Active Substance: APREPITANT
     Dosage: 125 MILLIGRAM 1 EVERY 1 DAY
     Route: 048
  198. LORAZEPAM [Suspect]
     Active Substance: LORAZEPAM
     Indication: Tardive dyskinesia
     Dosage: 0.5 MILLIGRAM 1 EVERY 1 DAY
     Route: 048
  199. LORAZEPAM [Suspect]
     Active Substance: LORAZEPAM
     Dosage: 0.5 MILLIGRAM
     Route: 048
  200. LORAZEPAM [Suspect]
     Active Substance: LORAZEPAM
     Dosage: 0.5 MILLIGRAM 2 EVERY 1 DAY
     Route: 048
  201. LORAZEPAM [Suspect]
     Active Substance: LORAZEPAM
     Dosage: 0.5 MILLIGRAM EVERY 12 HOURS
     Route: 048
  202. LORAZEPAM [Suspect]
     Active Substance: LORAZEPAM
     Dosage: 0.5 MILLIGRAM 2 EVERY 1 DAY
     Route: 048
  203. NEULASTA [Suspect]
     Active Substance: PEGFILGRASTIM
     Indication: Supportive care
     Dosage: 6 MILLIGRAM
     Route: 058
  204. NEULASTA [Suspect]
     Active Substance: PEGFILGRASTIM
     Dosage: 6 MILLIGRAM
     Route: 058
  205. NEULASTA [Suspect]
     Active Substance: PEGFILGRASTIM
     Dosage: 6 MILLIGRAM
     Route: 058
  206. NEULASTA [Suspect]
     Active Substance: PEGFILGRASTIM
     Dosage: 6 MILLIGRAM
     Route: 058
  207. NEULASTA [Suspect]
     Active Substance: PEGFILGRASTIM
     Dosage: 6 MILLIGRAM 1 EVERY 1 DAY
     Route: 058
  208. NEULASTA [Suspect]
     Active Substance: PEGFILGRASTIM
     Dosage: 6 MILLIGRAM
     Route: 058
  209. NEULASTA [Suspect]
     Active Substance: PEGFILGRASTIM
     Indication: Supportive care
     Dosage: 6 MILLIGRAM
     Route: 058
  210. NEULASTA [Suspect]
     Active Substance: PEGFILGRASTIM
     Dosage: 6 MILLIGRAM 1 EVERY 1 DAY
     Route: 058
  211. NEULASTA [Suspect]
     Active Substance: PEGFILGRASTIM
     Indication: Supportive care
     Dosage: 6 MILLIGRAM
     Route: 058
  212. NEULASTA [Suspect]
     Active Substance: PEGFILGRASTIM
     Dosage: 6 MILLIGRAM
     Route: 058
  213. NEULASTA [Suspect]
     Active Substance: PEGFILGRASTIM
     Dosage: 6 MILLIGRAM
     Route: 058
  214. NEULASTA [Suspect]
     Active Substance: PEGFILGRASTIM
     Dosage: 6 MILLIGRAM
     Route: 058
  215. NEULASTA [Suspect]
     Active Substance: PEGFILGRASTIM
     Dosage: 6 MILLIGRAM
     Route: 058
  216. NEULASTA [Suspect]
     Active Substance: PEGFILGRASTIM
     Dosage: 6 MILLIGRAM
     Route: 058
  217. NEULASTA [Suspect]
     Active Substance: PEGFILGRASTIM
     Dosage: 6 MILLIGRAM 1 EVERY 1 DAY
     Route: 058
  218. NEUPOGEN [Suspect]
     Active Substance: FILGRASTIM
     Indication: Supportive care
     Dosage: 480 MICROGRAM 1 EVERY 1 DAY
     Route: 065
  219. NEUPOGEN [Suspect]
     Active Substance: FILGRASTIM
     Dosage: 480 MICROGRAM 1 EVERY 1 DAY
     Route: 065
  220. NEUPOGEN [Suspect]
     Active Substance: FILGRASTIM
     Dosage: 480 MICROGRAM 1 EVERY 1 DAY
     Route: 065
  221. NEUPOGEN [Suspect]
     Active Substance: FILGRASTIM
     Dosage: 480 MICROGRAM 1 EVERY 1 DAY
     Route: 048
  222. NEUPOGEN [Suspect]
     Active Substance: FILGRASTIM
     Dosage: 125 MILLIGRAM 1 EVERY 1 DAY
     Route: 048
  223. NEUPOGEN [Suspect]
     Active Substance: FILGRASTIM
     Dosage: 480 MILLIGRAM 1 EVERY 1 DAY
     Route: 048
  224. NEUPOGEN [Suspect]
     Active Substance: FILGRASTIM
     Dosage: 125 MILLIGRAM 1 EVERY 1 DAY
     Route: 048
  225. NEUPOGEN [Suspect]
     Active Substance: FILGRASTIM
     Dosage: 480 MILLIGRAM 1 EVERY 1 DAY
     Route: 065
  226. NEUPOGEN [Suspect]
     Active Substance: FILGRASTIM
     Indication: Supportive care
     Dosage: 480 MICROGRAM 1 EVERY 1 DAY
     Route: 065
  227. NEUPOGEN [Suspect]
     Active Substance: FILGRASTIM
     Dosage: 480 MICROGRAM 1 EVERY 1 DAY
     Route: 065
  228. NEUPOGEN [Suspect]
     Active Substance: FILGRASTIM
     Dosage: 480 MICROGRAM 1 EVERY 1 DAY
     Route: 065
  229. NEUPOGEN [Suspect]
     Active Substance: FILGRASTIM
     Dosage: 480 MICROGRAM 1 EVERY 1 DAY
     Route: 048
  230. NEUPOGEN [Suspect]
     Active Substance: FILGRASTIM
     Dosage: 480 MICROGRAM 1 EVERY 1 DAY
     Route: 065
  231. NEUPOGEN [Suspect]
     Active Substance: FILGRASTIM
     Dosage: 125 MILLIGRAM 1 EVERY 1 DAY
     Route: 048
  232. NEUPOGEN [Suspect]
     Active Substance: FILGRASTIM
     Dosage: 480 MICROGRAM 1 EVERY 1 DAY
     Route: 042
  233. ONDANSETRON [Suspect]
     Active Substance: ONDANSETRON
     Indication: Supportive care
     Dosage: UNK
     Route: 048
  234. ONDANSETRON [Suspect]
     Active Substance: ONDANSETRON
     Dosage: UNK
     Route: 065
  235. ONDANSETRON [Suspect]
     Active Substance: ONDANSETRON
     Dosage: 8 MILLIGRAM
     Route: 048
  236. ONDANSETRON [Suspect]
     Active Substance: ONDANSETRON
     Dosage: 8 MILLIGRAM
     Route: 048
  237. ONDANSETRON [Suspect]
     Active Substance: ONDANSETRON
     Dosage: 8 MILLIGRAM
     Route: 048
  238. ONDANSETRON [Suspect]
     Active Substance: ONDANSETRON
     Dosage: 8 MILLIGRAM
     Route: 048
  239. ONDANSETRON [Suspect]
     Active Substance: ONDANSETRON
     Dosage: 8 MILLIGRAM
     Route: 048
  240. ONDANSETRON [Suspect]
     Active Substance: ONDANSETRON
     Dosage: 8 MILLIGRAM
     Route: 048
  241. ONDANSETRON [Suspect]
     Active Substance: ONDANSETRON
     Dosage: 8 MILLIGRAM
     Route: 048
  242. ONDANSETRON [Suspect]
     Active Substance: ONDANSETRON
     Dosage: 8 MILLIGRAM 1 EVERY 1 DAY
     Route: 048
  243. ONDANSETRON [Suspect]
     Active Substance: ONDANSETRON
     Dosage: 8 MILLIGRAM
     Route: 048
  244. ONDANSETRON [Suspect]
     Active Substance: ONDANSETRON
     Dosage: 8 MILLIGRAM
     Route: 048
  245. CYCLOPHOSPHAMIDE [Suspect]
     Active Substance: CYCLOPHOSPHAMIDE
     Indication: Breast cancer
     Dosage: 1360 MILLIGRAM 1 EVERY 2 WEEKS
     Route: 042
  246. CYCLOPHOSPHAMIDE [Suspect]
     Active Substance: CYCLOPHOSPHAMIDE
     Indication: Tardive dyskinesia
     Dosage: 1360 MILLIGRAM 1 EVERY 2 WEEKS
     Route: 042
  247. CYCLOPHOSPHAMIDE [Suspect]
     Active Substance: CYCLOPHOSPHAMIDE
     Dosage: UNK
     Route: 042
  248. CYCLOPHOSPHAMIDE [Suspect]
     Active Substance: CYCLOPHOSPHAMIDE
     Dosage: UNK
     Route: 065
  249. CYCLOPHOSPHAMIDE [Suspect]
     Active Substance: CYCLOPHOSPHAMIDE
     Dosage: 1360 MILLIGRAM
     Route: 042
  250. CYCLOPHOSPHAMIDE [Suspect]
     Active Substance: CYCLOPHOSPHAMIDE
     Dosage: 1360 MILLIGRAM 1 EVERY 2 WEEKS
     Route: 042
  251. RANITIDINE HYDROCHLORIDE [Suspect]
     Active Substance: RANITIDINE HYDROCHLORIDE
     Indication: Tardive dyskinesia
     Dosage: 150 MILLIGRAM 2 EVERY 1 DAY
     Route: 048
  252. RANITIDINE HYDROCHLORIDE [Suspect]
     Active Substance: RANITIDINE HYDROCHLORIDE
     Dosage: 150 MILLIGRAM 2 EVERY 1 DAY
     Route: 048
  253. RANITIDINE HYDROCHLORIDE [Suspect]
     Active Substance: RANITIDINE HYDROCHLORIDE
     Dosage: 150 MILLIGRAM 1 EVERY 2 WEEKS
     Route: 048
  254. RANITIDINE HYDROCHLORIDE [Suspect]
     Active Substance: RANITIDINE HYDROCHLORIDE
     Dosage: 150 MILLIGRAM
     Route: 048
  255. RANITIDINE HYDROCHLORIDE [Suspect]
     Active Substance: RANITIDINE HYDROCHLORIDE
     Dosage: 150 MILLIGRAM
     Route: 048
  256. RANITIDINE HYDROCHLORIDE [Suspect]
     Active Substance: RANITIDINE HYDROCHLORIDE
     Dosage: UNK
     Route: 048
  257. RANITIDINE HYDROCHLORIDE [Suspect]
     Active Substance: RANITIDINE HYDROCHLORIDE
     Dosage: 150 MILLIGRAM EVERY 12 HOURS
     Route: 048
  258. DOXORUBICIN [Suspect]
     Active Substance: DOXORUBICIN
     Indication: Breast cancer
     Dosage: 136 MILLIGRAM 1 EVERY 2 WEEKS
     Route: 042
  259. DOXORUBICIN [Suspect]
     Active Substance: DOXORUBICIN
     Indication: Breast cancer female
  260. DOXORUBICIN [Suspect]
     Active Substance: DOXORUBICIN
     Indication: Breast cancer
     Dosage: 136 MILLIGRAM
     Route: 042
  261. DOXORUBICIN [Suspect]
     Active Substance: DOXORUBICIN
     Indication: Breast cancer
     Dosage: 136 MILLIGRAM 1 EVERY 2 WEEKS
     Route: 042
  262. ENOXAPARIN [Suspect]
     Active Substance: ENOXAPARIN
     Indication: Tardive dyskinesia
     Route: 058
  263. CYCLOPHOSPHAMIDE [Suspect]
     Active Substance: CYCLOPHOSPHAMIDE
     Indication: Breast cancer
     Dosage: 1360 MILLIGRAM 1 EVERY 2 WEEKS
     Route: 042
  264. CYCLOPHOSPHAMIDE [Suspect]
     Active Substance: CYCLOPHOSPHAMIDE
     Indication: Tardive dyskinesia
     Dosage: UNK
     Route: 065
  265. ACETAMINOPHEN\CODEINE PHOSPHATE [Suspect]
     Active Substance: ACETAMINOPHEN\CODEINE PHOSPHATE
     Indication: Tardive dyskinesia
     Dosage: 30 MILLIGRAM 1 EVERY 4 HOURS
     Route: 065
  266. ACETAMINOPHEN\CODEINE PHOSPHATE [Suspect]
     Active Substance: ACETAMINOPHEN\CODEINE PHOSPHATE
     Dosage: 30 MILLIGRAM 1 EVERY 1 DAY
     Route: 065
  267. ACETAMINOPHEN\CODEINE PHOSPHATE [Suspect]
     Active Substance: ACETAMINOPHEN\CODEINE PHOSPHATE
     Dosage: 30 MILLIGRAM 1 EVERY 4 HOURS
     Route: 065
  268. ACETAMINOPHEN [Suspect]
     Active Substance: ACETAMINOPHEN
     Indication: Tardive dyskinesia
     Dosage: 30.0 MILLIGRAM, 1 EVERY 1 DAY
     Route: 065
  269. CYCLOPHOSPHAMIDE [Suspect]
     Active Substance: CYCLOPHOSPHAMIDE
     Indication: Tardive dyskinesia
     Dosage: UNK
     Route: 042
  270. CYCLOPHOSPHAMIDE [Suspect]
     Active Substance: CYCLOPHOSPHAMIDE
     Indication: Breast cancer female
     Dosage: UNK
     Route: 042
  271. CYCLOPHOSPHAMIDE [Suspect]
     Active Substance: CYCLOPHOSPHAMIDE
     Dosage: UNK
     Route: 042
  272. CYCLOPHOSPHAMIDE [Suspect]
     Active Substance: CYCLOPHOSPHAMIDE
     Dosage: UNK
     Route: 042
  273. CYCLOPHOSPHAMIDE [Suspect]
     Active Substance: CYCLOPHOSPHAMIDE
     Dosage: UNK
     Route: 042
  274. CYCLOPHOSPHAMIDE [Suspect]
     Active Substance: CYCLOPHOSPHAMIDE
     Indication: Tardive dyskinesia
     Dosage: UNK
     Route: 065
  275. CYCLOPHOSPHAMIDE [Suspect]
     Active Substance: CYCLOPHOSPHAMIDE
     Indication: Breast cancer female

REACTIONS (13)
  - Atelectasis [Recovered/Resolved]
  - Computerised tomogram thorax abnormal [Recovered/Resolved]
  - Computerised tomogram thorax [Recovered/Resolved]
  - Gastrointestinal disorder [Recovered/Resolved]
  - Cough [Recovered/Resolved]
  - Dyspnoea [Recovered/Resolved]
  - Fatigue [Recovered/Resolved]
  - Hypoxia [Recovered/Resolved]
  - Nausea [Recovered/Resolved]
  - Pyrexia [Recovered/Resolved]
  - Rash [Recovered/Resolved]
  - Off label use [Recovered/Resolved]
  - Intentional product use issue [Unknown]
